FAERS Safety Report 7704847-5 (Version None)
Quarter: 2011Q3

REPORT INFORMATION
  Report Type: 
  Country: None (occurrence: None)
  Receive Date: 20110823
  Receipt Date: 20110822
  Transmission Date: 20111222
  Serious: Yes (Other)
  Sender: FDA-Public Use
  Company Number: US-PFIZER INC-2011194535

PATIENT
  Sex: Female
  Weight: 69.388 kg

DRUGS (4)
  1. BUSPIRONE [Concomitant]
     Dosage: UNK
  2. GEODON [Suspect]
     Indication: SCHIZOPHRENIA
     Dosage: 120 MG, 1X/DAY
     Route: 048
     Dates: start: 20110601
  3. ZOLOFT [Concomitant]
     Dosage: UNK
  4. TRAZODONE [Concomitant]
     Dosage: UNK

REACTIONS (3)
  - POSTURE ABNORMAL [None]
  - GAIT DISTURBANCE [None]
  - MOVEMENT DISORDER [None]
